FAERS Safety Report 8910683 (Version 1)
Quarter: 2012Q4

REPORT INFORMATION
  Report Type: Spontaneous
  Country: DE (occurrence: None)
  Receive Date: 20121108
  Receipt Date: 20121108
  Transmission Date: 20130627
  Serious: Yes (Hospitalization, Congenital Anomaly, Other)
  Sender: FDA-Public Use
  Company Number: AUR-APL-2012-04718

PATIENT
  Sex: Female
  Weight: 3 kg

DRUGS (2)
  1. PAROXETINE [Suspect]
     Indication: DEPRESSION
     Route: 064
     Dates: start: 20100801, end: 20110506
  2. FOLIC ACID (FOLIC ACID) [Concomitant]

REACTIONS (7)
  - Caesarean section [None]
  - Apgar score low [None]
  - Maternal drugs affecting foetus [None]
  - Dyspnoea [None]
  - Oxygen saturation decreased [None]
  - Hypoglycaemia neonatal [None]
  - Atrial septal defect [None]
